FAERS Safety Report 7821825-6 (Version None)
Quarter: 2011Q4

REPORT INFORMATION
  Report Type: 
  Country: None (occurrence: None)
  Receive Date: 20111018
  Receipt Date: 20110405
  Transmission Date: 20120403
  Serious: No
  Sender: FDA-Public Use
  Company Number: US-ASTRAZENECA-2010SE61507

PATIENT
  Age: 70 Year
  Sex: Male
  Weight: 87.1 kg

DRUGS (1)
  1. SYMBICORT [Suspect]
     Indication: CHRONIC OBSTRUCTIVE PULMONARY DISEASE
     Dosage: 160-4.5 MCG BID
     Route: 055
     Dates: start: 20101201

REACTIONS (3)
  - INCREASED UPPER AIRWAY SECRETION [None]
  - DRUG DOSE OMISSION [None]
  - COUGH [None]
